FAERS Safety Report 5703755-9 (Version None)
Quarter: 2008Q2

REPORT INFORMATION
  Report Type: 
  Country: None (occurrence: None)
  Receive Date: 20080413
  Receipt Date: 20080409
  Transmission Date: 20081010
  Serious: Yes (Death)
  Sender: FDA-Public Use
  Company Number: PHHY2008BR05200

PATIENT
  Age: 77 Year
  Sex: Female

DRUGS (4)
  1. EXELON [Suspect]
     Indication: DEMENTIA ALZHEIMER'S TYPE
     Dosage: 3 MG, BID
     Dates: start: 20060101
  2. EXELON [Suspect]
     Dosage: 4.5 MG, BID
  3. EXELON [Suspect]
     Dosage: 6 MG, BID
  4. DIOVAN [Concomitant]
     Indication: DEPRESSION

REACTIONS (1)
  - PANCREATIC CARCINOMA [None]
